FAERS Safety Report 22600604 (Version 3)
Quarter: 2024Q2

REPORT INFORMATION
  Report Type: Report from Study
  Country: IL (occurrence: IL)
  Receive Date: 20230614
  Receipt Date: 20240527
  Transmission Date: 20240716
  Serious: Yes (Other)
  Sender: FDA-Public Use
  Company Number: IL-GLAXOSMITHKLINE-IL2023EME079585

PATIENT

DRUGS (1)
  1. MEPOLIZUMAB [Suspect]
     Active Substance: MEPOLIZUMAB
     Indication: Chronic obstructive pulmonary disease
     Dosage: UNK

REACTIONS (1)
  - Dermatitis exfoliative generalised [Recovering/Resolving]
